FAERS Safety Report 18213419 (Version 1)
Quarter: 2020Q3

REPORT INFORMATION
  Report Type: Spontaneous
  Country: US (occurrence: US)
  Receive Date: 20200831
  Receipt Date: 20200831
  Transmission Date: 20201103
  Serious: Yes (Other)
  Sender: FDA-Public Use
  Company Number: US-BAYER-2020-179831

PATIENT
  Age: 9 Year
  Sex: Male
  Weight: 31.75 kg

DRUGS (4)
  1. KOVALTRY [Suspect]
     Active Substance: ANTIHEMOPHILIC FACTOR, HUMAN RECOMBINANT
     Indication: FACTOR VIII DEFICIENCY
     Dosage: 1250 U (+/?10%) FOR LIFE/LIMB THREATENNIG AND CALL HTC
     Route: 042
     Dates: start: 201807
  2. AMICAR [Concomitant]
     Active Substance: AMINOCAPROIC ACID
  3. KOVALTRY [Suspect]
     Active Substance: ANTIHEMOPHILIC FACTOR, HUMAN RECOMBINANT
     Indication: PROPHYLAXIS
     Dosage: 1250 U (+/?10%) FOR ROUTINE BLEEDING
     Route: 042
     Dates: start: 201807
  4. KOVALTRY [Suspect]
     Active Substance: ANTIHEMOPHILIC FACTOR, HUMAN RECOMBINANT
     Indication: FACTOR VIII DEFICIENCY
     Dosage: 1250 U (+/?10%)EVERY MONDAY, WEDNESDAY, FRIDAY
     Route: 042
     Dates: start: 201807

REACTIONS (1)
  - Haemarthrosis [Not Recovered/Not Resolved]

NARRATIVE: CASE EVENT DATE: 20200824
